FAERS Safety Report 10916245 (Version 1)
Quarter: 2015Q1

REPORT INFORMATION
  Report Type: Spontaneous
  Country: FR (occurrence: FR)
  Receive Date: 20150316
  Receipt Date: 20150316
  Transmission Date: 20150721
  Serious: Yes (Hospitalization)
  Sender: FDA-Public Use
  Company Number: FR-TEVA-546745ISR

PATIENT
  Age: 67 Year
  Sex: Male

DRUGS (6)
  1. MYLOTARG [Suspect]
     Active Substance: GEMTUZUMAB OZOGAMICIN
     Indication: ACUTE LEUKAEMIA
     Dosage: CONSOLIDATION COURSE OF CHEMOTHERAPY
     Dates: start: 20150106, end: 20150118
  2. MITOXANTRONE TEVA [Suspect]
     Active Substance: MITOXANTRONE HYDROCHLORIDE
     Indication: ACUTE LEUKAEMIA
     Dosage: CONSOLIDATION COURSE OF CHEMOTHERAPY
     Dates: start: 20150106, end: 20150118
  3. ARACYTINE [Suspect]
     Active Substance: CYTARABINE
     Indication: ACUTE LEUKAEMIA
     Dosage: CONSOLIDATION COURSE OF CHEMOTHERAPY
     Dates: start: 20150106, end: 20150118
  4. SOLU-MEDROL [Concomitant]
     Active Substance: METHYLPREDNISOLONE SODIUM SUCCINATE
     Dosage: PROTOCOL OF PREMEDICATION
  5. ZOPHREN [Concomitant]
     Active Substance: ONDANSETRON
     Dosage: PROTOCOL OF PREMEDICATION
  6. EMEND [Concomitant]
     Active Substance: APREPITANT
     Dosage: PROTOCOL OF PREMEDICATION

REACTIONS (5)
  - Blood pressure decreased [Unknown]
  - Escherichia infection [Unknown]
  - Septic shock [Recovered/Resolved]
  - Pyrexia [Recovered/Resolved]
  - Bone marrow failure [Recovered/Resolved]

NARRATIVE: CASE EVENT DATE: 20150115
